APPROVED DRUG PRODUCT: METHYLPREDNISOLONE SODIUM SUCCINATE
Active Ingredient: METHYLPREDNISOLONE SODIUM SUCCINATE
Strength: EQ 2GM BASE/VIAL
Dosage Form/Route: INJECTABLE;INJECTION
Application: A207667 | Product #004
Applicant: EUGIA PHARMA SPECIALITIES LTD
Approved: Dec 15, 2015 | RLD: No | RS: No | Type: DISCN